FAERS Safety Report 4933860-6 (Version None)
Quarter: 2006Q1

REPORT INFORMATION
  Report Type: 
  Country: None (occurrence: None)
  Receive Date: 20060306
  Receipt Date: 20050112
  Transmission Date: 20060701
  Serious: Yes (Hospitalization, Other)
  Sender: FDA-Public Use
  Company Number: US-MERCK-0501USA02224

PATIENT
  Age: 70 Year
  Sex: Male
  Weight: 84 kg

DRUGS (5)
  1. VIOXX [Suspect]
     Indication: ARTHRITIS
     Route: 048
     Dates: start: 19990801, end: 20040901
  2. MICARDIS [Concomitant]
     Route: 065
  3. ASPIRIN [Concomitant]
     Route: 065
  4. DARVOCET [Concomitant]
     Indication: NECK PAIN
     Route: 065
  5. BEXTRA [Concomitant]
     Route: 065

REACTIONS (13)
  - BACK PAIN [None]
  - CARDIAC DISORDER [None]
  - CELLULITIS [None]
  - CEREBROVASCULAR ACCIDENT [None]
  - DEMENTIA ALZHEIMER'S TYPE [None]
  - DRUG INEFFECTIVE [None]
  - GOUT [None]
  - HALLUCINATION [None]
  - HEADACHE [None]
  - MENINGITIS [None]
  - SOMNOLENCE [None]
  - TOXIC INDUCED ENCEPHALOPATHY [None]
  - TRANSIENT ISCHAEMIC ATTACK [None]
